FAERS Safety Report 5809683-2 (Version None)
Quarter: 2008Q3

REPORT INFORMATION
  Report Type: 
  Country: None (occurrence: None)
  Receive Date: 20080711
  Receipt Date: 20080711
  Transmission Date: 20090109
  Serious: Yes (Hospitalization)
  Sender: FDA-Public Use
  Company Number: None

PATIENT
  Sex: Female
  Weight: 90.1 kg

DRUGS (15)
  1. DOXIL [Suspect]
     Dosage: 75 MG
  2. PEGFILGRASTIM (NEULASTA) [Suspect]
     Dosage: 6 MG
  3. PREDNISONE TAB [Suspect]
     Dosage: 200 MG
  4. RITUXIMAB (MOAB C2B8 ANTI CD20,CHIMERIC) [Suspect]
     Dosage: 708 MG
  5. VINCRISTINE SULFATE [Suspect]
     Dosage: 2 MG
  6. CYCLOPHOSPHAMIDE [Suspect]
     Dosage: 1417 MG
  7. ABH [Concomitant]
  8. BENADRYL [Concomitant]
  9. COREG [Concomitant]
  10. DARVON [Concomitant]
  11. ENOXAPARIN SODIUM [Concomitant]
  12. NEXIUM [Concomitant]
  13. SENOKOT [Concomitant]
  14. ZOFRAN [Concomitant]
  15. ZOLOFT [Concomitant]

REACTIONS (4)
  - PALMAR-PLANTAR ERYTHRODYSAESTHESIA SYNDROME [None]
  - PALPITATIONS [None]
  - SUPRAVENTRICULAR EXTRASYSTOLES [None]
  - VENTRICULAR EXTRASYSTOLES [None]
